FAERS Safety Report 13272706 (Version 1)
Quarter: 2017Q1

REPORT INFORMATION
  Report Type: Spontaneous
  Country: US (occurrence: US)
  Receive Date: 20170225
  Receipt Date: 20170225
  Transmission Date: 20170428
  Serious: No
  Sender: FDA-Public Use
  Company Number: None

PATIENT

DRUGS (1)
  1. SODIUM CHLORIDE INJECTION, 09% [Suspect]
     Active Substance: SODIUM CHLORIDE
     Indication: DRUG THERAPY
     Route: 041
     Dates: start: 20170225, end: 20170225

REACTIONS (1)
  - Product container issue [None]

NARRATIVE: CASE EVENT DATE: 20170225
